FAERS Safety Report 13173805 (Version 1)
Quarter: 2017Q1

REPORT INFORMATION
  Report Type: Spontaneous
  Country: US (occurrence: US)
  Receive Date: 20170130
  Receipt Date: 20170130
  Transmission Date: 20170428
  Serious: Yes (Other)
  Sender: FDA-Public Use
  Company Number: None

PATIENT
  Age: 60 Year
  Sex: Female

DRUGS (7)
  1. VITAMIN D [Concomitant]
     Active Substance: CHOLECALCIFEROL
  2. VIT B1 [Concomitant]
     Active Substance: THIAMINE
  3. PRESERVISION [Concomitant]
     Active Substance: MINERALS\VITAMINS
  4. DHEA [Concomitant]
     Active Substance: PRASTERONE
  5. FISH OIL [Concomitant]
     Active Substance: FISH OIL
  6. GILENYA [Suspect]
     Active Substance: FINGOLIMOD HYDROCHLORIDE
     Indication: MULTIPLE SCLEROSIS
     Route: 048
     Dates: start: 20150528
  7. DIINDOLYMET [Concomitant]

REACTIONS (1)
  - JC virus infection [None]

NARRATIVE: CASE EVENT DATE: 201701
